FAERS Safety Report 14292044 (Version 1)
Quarter: 2017Q4

REPORT INFORMATION
  Report Type: Report from Study
  Country: US (occurrence: US)
  Receive Date: 20171215
  Receipt Date: 20171215
  Transmission Date: 20180321
  Serious: Yes (Death, Life-Threatening, Hospitalization)
  Sender: FDA-Public Use
  Company Number: US-ASTRAZENECA-2017SF03187

PATIENT
  Sex: Female

DRUGS (22)
  1. CENTRUM WOMEN [Concomitant]
     Active Substance: VITAMINS
     Dosage: 18MG-0.4MG TABLET
  2. TAGRISSO [Suspect]
     Active Substance: OSIMERTINIB
     Indication: LUNG NEOPLASM MALIGNANT
     Route: 048
     Dates: start: 20170929
  3. NAPROXEN. [Concomitant]
     Active Substance: NAPROXEN
     Dosage: 250 MG TABLET
  4. COMBIVENT RESPIMAT [Concomitant]
     Active Substance: ALBUTEROL SULFATE\IPRATROPIUM BROMIDE
  5. FOLIC ACID. [Concomitant]
     Active Substance: FOLIC ACID
  6. VITAMIN C [Concomitant]
     Active Substance: ASCORBIC ACID
  7. ADVIL [Concomitant]
     Active Substance: IBUPROFEN
  8. ONDANSETRON HYDROCHLORIDE. [Concomitant]
     Active Substance: ONDANSETRON HYDROCHLORIDE
  9. VITAMIN B12 [Concomitant]
     Active Substance: CYANOCOBALAMIN
  10. LEVALBUTEROL CONCENTRATE [Concomitant]
  11. POTASSIUM [Concomitant]
     Active Substance: POTASSIUM
  12. VITAMIN C [Concomitant]
     Active Substance: ASCORBIC ACID
     Dosage: 1000 MG TABLET
  13. TAGRISSO [Suspect]
     Active Substance: OSIMERTINIB
     Indication: EGFR GENE MUTATION
     Route: 048
     Dates: start: 20170929
  14. OXYGEN. [Concomitant]
     Active Substance: OXYGEN
  15. CALTRATE [Concomitant]
     Active Substance: CALCIUM CARBONATE
     Dosage: 600 PLUS D3
  16. MINOCYCLINE HYDROCHLORIDE. [Concomitant]
     Active Substance: MINOCYCLINE HYDROCHLORIDE
     Dosage: 100 MG CAPSULE
  17. BIOTIN [Concomitant]
     Active Substance: BIOTIN
     Dosage: 10 MG TABLET
  18. VITAMIN D3 [Concomitant]
     Active Substance: CHOLECALCIFEROL
     Dosage: 10000 UNIT CAPSULE
  19. XGEVA [Concomitant]
     Active Substance: DENOSUMAB
     Dosage: 4 MG TABLET
  20. CHERATUSSIN AC [Concomitant]
     Active Substance: CODEINE PHOSPHATE\GUAIFENESIN
     Dosage: AC 10-100MG/5 LIQUID
  21. LEVOTHYROXINE SODIUM. [Concomitant]
     Active Substance: LEVOTHYROXINE SODIUM
  22. LOPERAMIDE [Concomitant]
     Active Substance: LOPERAMIDE

REACTIONS (12)
  - Peripheral swelling [Unknown]
  - Pleural effusion [Unknown]
  - Death [Fatal]
  - Cerebrovascular accident [Unknown]
  - Asthenia [Unknown]
  - Blood thyroid stimulating hormone increased [Unknown]
  - Joint swelling [Unknown]
  - Neck pain [Unknown]
  - Pain [Unknown]
  - Ocular hyperaemia [Unknown]
  - Eye pain [Unknown]
  - Catheter site pain [Unknown]
